FAERS Safety Report 24752985 (Version 1)
Quarter: 2024Q4

REPORT INFORMATION
  Report Type: Spontaneous
  Country: GB (occurrence: GB)
  Receive Date: 20241219
  Receipt Date: 20241219
  Transmission Date: 20250115
  Serious: Yes (Other)
  Sender: B BRAUN
  Company Number: GB-B.Braun Medical Inc.-2167382

PATIENT
  Age: 75 Year
  Sex: Female
  Weight: 71 kg

DRUGS (6)
  1. ACETAMINOPHEN [Suspect]
     Active Substance: ACETAMINOPHEN
  2. BISOPROLOL FUMARATE [Concomitant]
     Active Substance: BISOPROLOL FUMARATE
  3. EPLERENONE [Concomitant]
     Active Substance: EPLERENONE
  4. RIVAROXABAN [Concomitant]
     Active Substance: RIVAROXABAN
  5. SACUBITRIL [Concomitant]
     Active Substance: SACUBITRIL
  6. DAPAGLIFLOZIN [Concomitant]
     Active Substance: DAPAGLIFLOZIN

REACTIONS (3)
  - Arthritis reactive [Recovered/Resolved]
  - Off label use [Recovered/Resolved]
  - Rash [Recovered/Resolved]
